FAERS Safety Report 9508167 (Version 3)
Quarter: 2013Q4

REPORT INFORMATION
  Report Type: Spontaneous
  Country: US (occurrence: US)
  Receive Date: 20130909
  Receipt Date: 20131227
  Transmission Date: 20140711
  Serious: No
  Sender: FDA-Public Use
  Company Number: US-PFIZER INC-2013255116

PATIENT
  Age: 79 Year
  Sex: Female
  Weight: 76.19 kg

DRUGS (13)
  1. CELEBREX [Suspect]
     Indication: ARTHRITIS
     Dosage: 200 MG, 2X/DAY
     Route: 048
     Dates: start: 201204, end: 201210
  2. CELEBREX [Suspect]
     Dosage: 200 MG, 2X/DAY
     Route: 048
     Dates: start: 2012
  3. CELEBREX [Suspect]
     Dosage: 200 MG, 1X/DAY
     Route: 048
     Dates: end: 20130826
  4. KLOR-CON [Concomitant]
     Dosage: 10 MEQ, 2X/DAY
  5. LOVASTATIN [Concomitant]
     Indication: BLOOD CHOLESTEROL INCREASED
     Dosage: 10 MG, 1X/DAY
  6. SPIRONOLACTONE [Concomitant]
     Dosage: 25 MG, 1X/DAY
  7. LASIX [Concomitant]
     Dosage: 40 MG, 1X/DAY
  8. COUMADINE [Concomitant]
     Dosage: 3MG FIVE DAYS A WEEK AND 3.5MG TWO DAYS A WEEK
  9. ALLOPURINOL [Concomitant]
     Indication: GOUT
     Dosage: 100 MG, 1X/DAY
  10. PRAMIPEXOLE [Concomitant]
     Dosage: 25 MG, 3X/DAY
  11. IBANDRONATE SODIUM [Concomitant]
     Dosage: 150 MG, MONTHLY
  12. GLUCOSAMINE [Concomitant]
     Indication: ARTHROPATHY
     Dosage: TWO TIMES A DAY
  13. CITRACAL + D [Concomitant]
     Dosage: TWO TIMES A DAY

REACTIONS (9)
  - Medication error [Not Recovered/Not Resolved]
  - Blister [Not Recovered/Not Resolved]
  - Rash [Not Recovered/Not Resolved]
  - Pruritus [Not Recovered/Not Resolved]
  - Drug hypersensitivity [Unknown]
  - Rash pruritic [Unknown]
  - Pityriasis rosea [Unknown]
  - Arthritis [Unknown]
  - Skin lesion [Recovered/Resolved]
